FAERS Safety Report 4888306-3 (Version None)
Quarter: 2006Q1

REPORT INFORMATION
  Report Type: 
  Country: None (occurrence: None)
  Receive Date: 20060119
  Receipt Date: 20060112
  Transmission Date: 20060701
  Serious: Yes (Other)
  Sender: FDA-Public Use
  Company Number: 2006BH000566

PATIENT

DRUGS (1)
  1. ADENOSINE SYRINGE [Suspect]

REACTIONS (1)
  - EXTRAVASATION [None]
